FAERS Safety Report 20938824 (Version 1)
Quarter: 2022Q2

REPORT INFORMATION
  Report Type: Spontaneous
  Country: US (occurrence: None)
  Receive Date: 20220608
  Receipt Date: 20220608
  Transmission Date: 20220721
  Serious: Yes (Death, Hospitalization)
  Sender: FDA-Public Use
  Company Number: None

PATIENT
  Age: 79 Year
  Sex: Female
  Weight: 51.75 kg

DRUGS (14)
  1. STIVARGA [Suspect]
     Active Substance: REGORAFENIB
     Indication: Colon cancer stage IV
     Dosage: FREQUENCY : DAILY;?
     Route: 048
     Dates: start: 20220501, end: 20220518
  2. VITAMIN B12 [Concomitant]
     Active Substance: CYANOCOBALAMIN
  3. ELIQUIS [Concomitant]
     Active Substance: APIXABAN
  4. CYMBALTA [Concomitant]
     Active Substance: DULOXETINE HYDROCHLORIDE
  5. Lidocaine patch [Concomitant]
  6. Diclofenac gel 1% [Concomitant]
  7. Pantopazole [Concomitant]
  8. STIVARGA [Concomitant]
     Active Substance: REGORAFENIB
  9. ONDANSETRON [Concomitant]
     Active Substance: ONDANSETRON
  10. OXYBUTYNIN [Concomitant]
     Active Substance: OXYBUTYNIN
  11. DIPHENHYDRAMINE HYDROCHLORIDE\LIDOCAINE HYDROCHLORIDE\NYSTATIN [Concomitant]
     Active Substance: DIPHENHYDRAMINE HYDROCHLORIDE\LIDOCAINE HYDROCHLORIDE\NYSTATIN
  12. CALCIUM CITRATE [Concomitant]
     Active Substance: CALCIUM CITRATE
  13. TYLENOL ARTHRITIS [Concomitant]
  14. VITAMINS [Concomitant]
     Active Substance: VITAMINS

REACTIONS (18)
  - Dizziness [None]
  - Fall [None]
  - Stress fracture [None]
  - Hip fracture [None]
  - Dizziness [None]
  - Contusion [None]
  - Cough [None]
  - Dyspnoea [None]
  - Abdominal pain upper [None]
  - Hypersomnia [None]
  - Confusional state [None]
  - Disorientation [None]
  - Disorientation [None]
  - Dysphonia [None]
  - Mouth ulceration [None]
  - Tongue disorder [None]
  - Gastrointestinal disorder [None]
  - Product complaint [None]

NARRATIVE: CASE EVENT DATE: 20220501
